FAERS Safety Report 6535816-9 (Version None)
Quarter: 2009Q4

REPORT INFORMATION
  Report Type: 
  Country: None (occurrence: None)
  Receive Date: 20091229
  Receipt Date: 20090921
  Transmission Date: 20100525
  Serious: Yes (Hospitalization)
  Sender: FDA-Public Use
  Company Number: 1000006991

PATIENT
  Age: 67 Year
  Sex: Female
  Weight: 74.8435 kg

DRUGS (6)
  1. BYSTOLIC [Suspect]
     Indication: HYPERTENSION
     Dosage: 10 MG (10 MG, 1 IN 1 D), ORAL
     Route: 048
     Dates: start: 20081023, end: 20090527
  2. LEVOTHYROXINE [Concomitant]
  3. CITALOPRAM HYDROBROMIDE [Concomitant]
  4. ALPRAZOLAM [Concomitant]
  5. ASPIRIN [Concomitant]
  6. PRILOSEC [Concomitant]

REACTIONS (1)
  - ANGIOEDEMA [None]
